FAERS Safety Report 10027754 (Version 1)
Quarter: 2014Q1

REPORT INFORMATION
  Report Type: Spontaneous
  Country: US (occurrence: US)
  Receive Date: 20140321
  Receipt Date: 20140321
  Transmission Date: 20141002
  Serious: Yes (Other)
  Sender: FDA-Public Use
  Company Number: US-ELI_LILLY_AND_COMPANY-US201403003736

PATIENT
  Sex: Female

DRUGS (2)
  1. ZYPREXA [Suspect]
     Indication: PRODUCT USED FOR UNKNOWN INDICATION
     Dosage: 10 MG, QD
     Route: 048
  2. ZYPREXA [Suspect]
     Dosage: 30 MG, QD
     Route: 048

REACTIONS (4)
  - Mobility decreased [Unknown]
  - Hypothyroidism [Unknown]
  - Coeliac disease [Unknown]
  - Inappropriate schedule of drug administration [Unknown]
